FAERS Safety Report 6465473-1 (Version None)
Quarter: 2009Q4

REPORT INFORMATION
  Report Type: 
  Country: None (occurrence: None)
  Receive Date: 20091201
  Receipt Date: 20081121
  Transmission Date: 20100525
  Serious: No
  Sender: FDA-Public Use
  Company Number: US-AMGEN-KDL309903

PATIENT
  Sex: Female
  Weight: 104.4 kg

DRUGS (6)
  1. ENBREL [Suspect]
     Indication: RHEUMATOID ARTHRITIS
     Route: 058
     Dates: start: 20070201
  2. PREDNISONE TAB [Concomitant]
     Dates: start: 20050101
  3. VICODIN [Concomitant]
     Dates: start: 20080401
  4. ALLOPURINOL [Concomitant]
     Dates: start: 20080301
  5. ALEVE [Concomitant]
     Dates: start: 20080301
  6. ATENOLOL [Concomitant]
     Dates: start: 20080101

REACTIONS (1)
  - GOUT [None]
